FAERS Safety Report 16969384 (Version 1)
Quarter: 2019Q4

REPORT INFORMATION
  Report Type: Spontaneous
  Country: DE (occurrence: DE)
  Receive Date: 20191029
  Receipt Date: 20191029
  Transmission Date: 20200122
  Serious: Yes (Death, Hospitalization)
  Sender: FDA-Public Use
  Company Number: DE-MYLANLABS-2019M1100893

PATIENT
  Age: 63 Year
  Sex: Male

DRUGS (1)
  1. CAPECITABINE. [Suspect]
     Active Substance: CAPECITABINE
     Indication: RECTAL CANCER
     Route: 065
     Dates: start: 201606, end: 201609

REACTIONS (3)
  - Leukoencephalopathy [Fatal]
  - Pneumonia aspiration [Fatal]
  - Pyramidal tract syndrome [Fatal]

NARRATIVE: CASE EVENT DATE: 201903
